FAERS Safety Report 5221521-8 (Version None)
Quarter: 2007Q1

REPORT INFORMATION
  Report Type: 
  Country: None (occurrence: None)
  Receive Date: 20070126
  Receipt Date: 20070116
  Transmission Date: 20070707
  Serious: Yes (Life-Threatening)
  Sender: FDA-Public Use
  Company Number: JP-PFIZER INC-2007006224

PATIENT
  Age: 75 Year
  Sex: Male

DRUGS (5)
  1. IRINOTECAN HCL [Suspect]
     Indication: LARGE INTESTINE CARCINOMA
     Route: 042
     Dates: start: 20060808, end: 20061219
  2. OMEPRAL [Concomitant]
  3. HYPEN [Concomitant]
  4. OXYCONTIN [Concomitant]
  5. FURTULON [Concomitant]

REACTIONS (3)
  - HEPATIC FUNCTION ABNORMAL [None]
  - LARGE INTESTINE PERFORATION [None]
  - PANCYTOPENIA [None]
